FAERS Safety Report 25188965 (Version 1)
Quarter: 2025Q2

REPORT INFORMATION
  Report Type: Spontaneous
  Country: CA (occurrence: CA)
  Receive Date: 20250411
  Receipt Date: 20250411
  Transmission Date: 20250716
  Serious: Yes (Death, Life-Threatening, Hospitalization, Other)
  Sender: HIKMA
  Company Number: CA-HIKMA PHARMACEUTICALS-CA-H14001-25-03156

PATIENT

DRUGS (30)
  1. AMPHOTERICIN B [Suspect]
     Active Substance: AMPHOTERICIN B
     Indication: Septic shock
     Route: 065
  2. AMPHOTERICIN B [Suspect]
     Active Substance: AMPHOTERICIN B
     Indication: Bacillus infection
  3. AMPHOTERICIN B [Suspect]
     Active Substance: AMPHOTERICIN B
     Indication: Antibiotic therapy
  4. AMPICILLIN [Suspect]
     Active Substance: AMPICILLIN
     Indication: Septic shock
     Route: 042
  5. AMPICILLIN [Suspect]
     Active Substance: AMPICILLIN
     Indication: Amniotic cavity infection
  6. AMPICILLIN [Suspect]
     Active Substance: AMPICILLIN
     Indication: Bacillus infection
  7. AMPICILLIN [Suspect]
     Active Substance: AMPICILLIN
     Indication: Antibiotic prophylaxis
  8. AMPICILLIN [Suspect]
     Active Substance: AMPICILLIN
     Indication: Antibiotic therapy
  9. DEXAMETHASONE [Suspect]
     Active Substance: DEXAMETHASONE
     Indication: Cholestasis
     Dosage: 0.15 MILLIGRAM/KILOGRAM, QD
     Route: 031
  10. DEXAMETHASONE [Suspect]
     Active Substance: DEXAMETHASONE
     Indication: Bronchopulmonary dysplasia
     Route: 065
  11. FLUCONAZOLE [Suspect]
     Active Substance: FLUCONAZOLE
     Indication: Septic shock
     Route: 042
  12. FLUCONAZOLE [Suspect]
     Active Substance: FLUCONAZOLE
     Indication: Bacillus infection
  13. FLUCONAZOLE [Suspect]
     Active Substance: FLUCONAZOLE
     Indication: Antibiotic therapy
  14. MEROPENEM [Suspect]
     Active Substance: MEROPENEM
     Indication: Septic shock
     Route: 065
  15. MEROPENEM [Suspect]
     Active Substance: MEROPENEM
     Indication: Bacillus infection
  16. MEROPENEM [Suspect]
     Active Substance: MEROPENEM
     Indication: Antibiotic therapy
  17. PIPERACILLIN SODIUM\TAZOBACTAM SODIUM [Suspect]
     Active Substance: PIPERACILLIN SODIUM\TAZOBACTAM SODIUM
     Indication: Septic shock
     Route: 065
  18. PIPERACILLIN SODIUM\TAZOBACTAM SODIUM [Suspect]
     Active Substance: PIPERACILLIN SODIUM\TAZOBACTAM SODIUM
     Indication: Bacillus infection
  19. PIPERACILLIN SODIUM\TAZOBACTAM SODIUM [Suspect]
     Active Substance: PIPERACILLIN SODIUM\TAZOBACTAM SODIUM
     Indication: Antibiotic therapy
  20. SULFAMETHOXAZOLE\TRIMETHOPRIM [Suspect]
     Active Substance: SULFAMETHOXAZOLE\TRIMETHOPRIM
     Indication: Septic shock
     Route: 065
  21. SULFAMETHOXAZOLE\TRIMETHOPRIM [Suspect]
     Active Substance: SULFAMETHOXAZOLE\TRIMETHOPRIM
     Indication: Bacillus infection
  22. SULFAMETHOXAZOLE\TRIMETHOPRIM [Suspect]
     Active Substance: SULFAMETHOXAZOLE\TRIMETHOPRIM
     Indication: Antibiotic therapy
  23. TOBRAMYCIN [Suspect]
     Active Substance: TOBRAMYCIN
     Indication: Septic shock
     Route: 065
  24. TOBRAMYCIN [Suspect]
     Active Substance: TOBRAMYCIN
     Indication: Amniotic cavity infection
  25. TOBRAMYCIN [Suspect]
     Active Substance: TOBRAMYCIN
     Indication: Bacillus infection
  26. TOBRAMYCIN [Suspect]
     Active Substance: TOBRAMYCIN
     Indication: Antibiotic prophylaxis
  27. TOBRAMYCIN [Suspect]
     Active Substance: TOBRAMYCIN
     Indication: Antibiotic therapy
  28. VANCOMYCIN [Suspect]
     Active Substance: VANCOMYCIN
     Indication: Septic shock
     Route: 042
  29. VANCOMYCIN [Suspect]
     Active Substance: VANCOMYCIN
     Indication: Bacillus infection
  30. VANCOMYCIN [Suspect]
     Active Substance: VANCOMYCIN
     Indication: Antibiotic therapy

REACTIONS (5)
  - Septic shock [Fatal]
  - Infection [Fatal]
  - Respiratory disorder [Fatal]
  - Drug ineffective [Fatal]
  - Off label use [Fatal]
